FAERS Safety Report 15351964 (Version 1)
Quarter: 2018Q4

REPORT INFORMATION
  Report Type: Report from Study
  Country: GB (occurrence: GB)
  Receive Date: 20180905
  Receipt Date: 20180905
  Transmission Date: 20190204
  Serious: Yes (Hospitalization, Other)
  Sender: FDA-Public Use
  Company Number: GB-PFIZER INC-2018351620

PATIENT
  Age: 80 Year
  Sex: Male
  Weight: 79 kg

DRUGS (4)
  1. SERTRALINE HCL [Suspect]
     Active Substance: SERTRALINE HYDROCHLORIDE
     Dosage: UNK
  2. WARFARIN [Concomitant]
     Active Substance: WARFARIN
     Indication: ATRIAL FIBRILLATION
     Dosage: UNK, QD
     Route: 048
     Dates: start: 20110111
  3. SACUBITRIL/VALSARTAN [Suspect]
     Active Substance: SACUBITRIL\VALSARTAN
     Indication: CARDIAC FAILURE
     Dosage: UNK (CODE NOT BROKEN)
     Route: 048
     Dates: start: 20171010, end: 20180321
  4. SACUBITRIL/VALSARTAN [Suspect]
     Active Substance: SACUBITRIL\VALSARTAN
     Dosage: UNK (CODE NOT BROKEN)
     Route: 048
     Dates: start: 20180413, end: 20180419

REACTIONS (3)
  - Sleep disorder [Recovering/Resolving]
  - Delusional disorder, unspecified type [Recovering/Resolving]
  - Delirium [Recovering/Resolving]

NARRATIVE: CASE EVENT DATE: 20180702
